FAERS Safety Report 6238800-8 (Version None)
Quarter: 2009Q2

REPORT INFORMATION
  Report Type: 
  Country: None (occurrence: None)
  Receive Date: 20090622
  Receipt Date: 20090616
  Transmission Date: 20091009
  Serious: Yes (Hospitalization)
  Sender: FDA-Public Use
  Company Number: FR-WATSON-2009-04513

PATIENT
  Age: 68 Year
  Sex: Male
  Weight: 70 kg

DRUGS (4)
  1. ALPRAZOLAM [Suspect]
     Indication: ANAESTHESIA PROCEDURE
     Dosage: 0.25 MG
  2. ATRACURIUM BESYLATE (WATSON LABORATORIES) [Suspect]
     Indication: NEUROMUSCULAR BLOCKING THERAPY
     Dosage: 35 MG
  3. SUFENTANIL [Suspect]
     Indication: ANAESTHESIA
     Dosage: 25 MCG
  4. BISOPROLOL [Suspect]
     Indication: PREOPERATIVE CARE
     Dosage: 5 MG

REACTIONS (1)
  - MYOCARDIAL ISCHAEMIA [None]
